FAERS Safety Report 9882163 (Version 1)
Quarter: 2014Q1

REPORT INFORMATION
  Report Type: Spontaneous
  Country: GB (occurrence: GB)
  Receive Date: 20140207
  Receipt Date: 20140207
  Transmission Date: 20141002
  Serious: Yes (Hospitalization)
  Sender: FDA-Public Use
  Company Number: GB-WATSON-2014-02181

PATIENT
  Age: 51 Year
  Sex: Female

DRUGS (4)
  1. FLUOXETINE (UNKNOWN) [Suspect]
     Indication: DEPRESSION
     Dosage: 40 MG, DAILY
     Route: 048
     Dates: start: 20130808, end: 20140114
  2. SOLIFENACIN [Suspect]
     Indication: URINARY INCONTINENCE
     Dosage: 5 MG, DAILY
     Route: 048
     Dates: start: 20130701, end: 20140114
  3. PREGABALIN [Concomitant]
     Indication: BACK PAIN
     Dosage: 150 MG, BID
     Route: 048
  4. ZAPAIN [Concomitant]
     Indication: BACK PAIN
     Dosage: UNK1-2 FOUR TIMES DAILY.
     Route: 048
     Dates: start: 20131017

REACTIONS (1)
  - Angioedema [Recovering/Resolving]
